FAERS Safety Report 7039484-1 (Version None)
Quarter: 2010Q4

REPORT INFORMATION
  Report Type: 
  Country: None (occurrence: None)
  Receive Date: 20101012
  Receipt Date: 20101004
  Transmission Date: 20110411
  Serious: Yes (Disabling, Other)
  Sender: FDA-Public Use
  Company Number: US-TEVA-243537USA

PATIENT
  Sex: Male

DRUGS (4)
  1. DISULFIRAM TABLETS, 250 MG AND 500 MG (ANTABUSE?) [Suspect]
     Indication: ALCOHOL ABUSE
     Dates: start: 20091201, end: 20100713
  2. ATENOLOL [Concomitant]
     Indication: HYPERTENSION
  3. QUINAPRIL [Concomitant]
  4. ACETYLSALICYLIC ACID SRT [Concomitant]

REACTIONS (4)
  - CAUDA EQUINA SYNDROME [None]
  - GAIT DISTURBANCE [None]
  - NEUROPATHY PERIPHERAL [None]
  - PERONEAL NERVE PALSY [None]
